APPROVED DRUG PRODUCT: TIZANIDINE HYDROCHLORIDE
Active Ingredient: TIZANIDINE HYDROCHLORIDE
Strength: EQ 4MG BASE
Dosage Form/Route: TABLET;ORAL
Application: A076354 | Product #002 | TE Code: AB
Applicant: RISING PHARMA HOLDING INC
Approved: Mar 28, 2003 | RLD: No | RS: No | Type: RX